FAERS Safety Report 8228987-X (Version None)
Quarter: 2012Q1

REPORT INFORMATION
  Report Type: 
  Country: None (occurrence: None)
  Receive Date: 20120322
  Receipt Date: 20120310
  Transmission Date: 20120608
  Serious: Yes (Hospitalization)
  Sender: FDA-Public Use
  Company Number: AR-UCBSA-052967

PATIENT
  Age: 52 Year
  Sex: Male
  Weight: 98.5 kg

DRUGS (8)
  1. CERTOLIZUMAB PEGOL [Suspect]
     Indication: ANKYLOSING SPONDYLITIS
     Route: 058
     Dates: start: 20110317, end: 20120228
  2. METOCLOPRAMIDE [Concomitant]
     Indication: PROPHYLAXIS
     Dosage: 1 AMPULLE
     Route: 042
     Dates: start: 20120307, end: 20120301
  3. SULFASALAZINE [Concomitant]
     Indication: ANKYLOSING SPONDYLITIS
     Dates: start: 20100801
  4. CERTOLIZUMAB PEGOL [Suspect]
     Route: 058
     Dates: start: 20120101, end: 20120301
  5. RANITIDINE [Concomitant]
     Dates: start: 20120301, end: 20120301
  6. DICLOFENAC SODIUM [Concomitant]
     Indication: ANKYLOSING SPONDYLITIS
     Dates: start: 20100801
  7. CLONAZEPAM [Concomitant]
     Indication: ANXIETY
     Dosage: 1 MG
     Dates: start: 20120307, end: 20120301
  8. RANITIDINE [Concomitant]
     Indication: PROPHYLAXIS
     Dosage: 1 AMPULLE
     Route: 042
     Dates: start: 20120307, end: 20120301

REACTIONS (1)
  - PULMONARY TUBERCULOSIS [None]
